FAERS Safety Report 14860910 (Version 4)
Quarter: 2018Q3

REPORT INFORMATION
  Report Type: Spontaneous
  Country: US (occurrence: US)
  Receive Date: 20180508
  Receipt Date: 20180905
  Transmission Date: 20181010
  Serious: Yes (Other)
  Sender: FDA-Public Use
  Company Number: US-PFIZER INC-2018186737

PATIENT
  Age: 72 Year
  Sex: Female
  Weight: 100.68 kg

DRUGS (3)
  1. IBRANCE [Suspect]
     Active Substance: PALBOCICLIB
     Dosage: 100 MG, CYCLIC (DAYS?1?21 Q28 DAYS)
     Route: 048
     Dates: start: 20180412
  2. IBRANCE [Suspect]
     Active Substance: PALBOCICLIB
     Dosage: 100 MG, CYCLIC (DAYS 1?21 Q28 DAYS)
     Route: 048
     Dates: start: 20180412
  3. IBRANCE [Suspect]
     Active Substance: PALBOCICLIB
     Indication: BREAST CANCER METASTATIC
     Dosage: 125 MG, CYCLIC (DAYS 1?21 Q28 DAYS)
     Route: 048
     Dates: start: 20180412

REACTIONS (10)
  - Cataract [Unknown]
  - Nausea [Unknown]
  - Colitis microscopic [Not Recovered/Not Resolved]
  - White blood cell count decreased [Not Recovered/Not Resolved]
  - Vomiting [Unknown]
  - Platelet count decreased [Not Recovered/Not Resolved]
  - Diarrhoea [Not Recovered/Not Resolved]
  - Crying [Unknown]
  - Depressed mood [Unknown]
  - Contusion [Unknown]

NARRATIVE: CASE EVENT DATE: 2018
